FAERS Safety Report 12570013 (Version 4)
Quarter: 2016Q3

REPORT INFORMATION
  Report Type: Spontaneous
  Country: US (occurrence: US)
  Receive Date: 20160719
  Receipt Date: 20160930
  Transmission Date: 20161109
  Serious: Yes (Other)
  Sender: FDA-Public Use
  Company Number: US-JNJCP-30000344385

PATIENT
  Age: 67 Year
  Sex: Female
  Weight: 81 kg

DRUGS (4)
  1. NEUTROGENA RAPID WRINKLE REPAIR NIGHT MOISTURIZER [Suspect]
     Active Substance: COSMETICS
     Indication: SKIN WRINKLING
     Dosage: ONCE DAILY
     Route: 061
     Dates: end: 20160626
  2. UNSPECIFIED BLOOD PRESSURE MEDICINE [Concomitant]
     Active Substance: UNSPECIFIED INGREDIENT
     Indication: HYPERTENSION
     Dosage: ONCE PER DAY, SINCE YEARS
  3. NEUTROGENA RAPID WRINKLE REPAIR MOISTURIZER SUNSCREEN BROAD SPECTRUM SPF30 [Suspect]
     Active Substance: AVOBENZONE\HOMOSALATE\OCTISALATE\OCTOCRYLENE
     Indication: SKIN WRINKLING
     Dosage: PEARL SIZE AMOUNT, ONCE PER DAY
     Route: 061
     Dates: end: 20160626
  4. NEUTROGENA DEEP CLEAN FACIAL CLEANSER [Suspect]
     Active Substance: COSMETICS
     Indication: REMOVAL OF INERT MATTER FROM SKIN OR SUBCUTANEOUS TISSUE
     Dosage: ONCE DAILY
     Route: 061
     Dates: end: 20160626

REACTIONS (1)
  - Dermatitis contact [Recovering/Resolving]

NARRATIVE: CASE EVENT DATE: 201606
